FAERS Safety Report 8394919-7 (Version None)
Quarter: 2012Q2

REPORT INFORMATION
  Report Type: 
  Country: None (occurrence: None)
  Receive Date: 20120530
  Receipt Date: 20110627
  Transmission Date: 20120825
  Serious: No
  Sender: FDA-Public Use
  Company Number: US-GLAXOSMITHKLINE-A0934845A

PATIENT
  Age: 44 Year
  Sex: Female
  Weight: 72.6 kg

DRUGS (12)
  1. ADVAIR DISKUS 100/50 [Concomitant]
     Dosage: 1PUFF PER DAY
  2. FLOLAN [Suspect]
     Indication: PULMONARY HYPERTENSION
     Route: 065
     Dates: start: 20040521
  3. ALDACTONE [Concomitant]
     Dosage: 100MG TWICE PER DAY
  4. OMEPRAZOLE [Concomitant]
     Dosage: 40MG PER DAY
     Route: 048
  5. ZOFRAN [Concomitant]
     Dosage: 8MG PER DAY
     Route: 048
  6. VICODIN [Concomitant]
     Dosage: 1TAB AS REQUIRED
  7. ATIVAN [Concomitant]
     Dosage: 2MG AS REQUIRED
     Route: 048
  8. LASIX [Concomitant]
     Dosage: 20MG TWICE PER DAY
     Route: 048
  9. ACYCLOVIR [Concomitant]
     Dosage: 200MG PER DAY
  10. IMODIUM A-D [Concomitant]
     Dosage: 1CAP AS REQUIRED
  11. XOPENEX [Concomitant]
     Dosage: 45MCG AS REQUIRED
  12. WARFARIN SODIUM [Concomitant]
     Route: 048

REACTIONS (3)
  - PRODUCTIVE COUGH [None]
  - HAEMOPTYSIS [None]
  - PYREXIA [None]
